FAERS Safety Report 13680855 (Version 1)
Quarter: 2017Q2

REPORT INFORMATION
  Report Type: Spontaneous
  Country: US (occurrence: US)
  Receive Date: 20170622
  Receipt Date: 20170622
  Transmission Date: 20170830
  Serious: Yes (Hospitalization)
  Sender: FDA-Public Use
  Company Number: None

PATIENT
  Age: 74 Year
  Sex: Male
  Weight: 60 kg

DRUGS (4)
  1. LEUCOVORIN CALCIUM. [Suspect]
     Active Substance: LEUCOVORIN CALCIUM
     Dates: end: 20170411
  2. XELODA [Suspect]
     Active Substance: CAPECITABINE
     Dates: end: 20160811
  3. 5-FLUOROURACIL [Suspect]
     Active Substance: FLUOROURACIL
     Dates: end: 20170411
  4. ELOXATIN [Suspect]
     Active Substance: OXALIPLATIN
     Dates: end: 20170411

REACTIONS (1)
  - Small intestinal obstruction [None]

NARRATIVE: CASE EVENT DATE: 20170415
